FAERS Safety Report 9322886 (Version 2)
Quarter: 2013Q2

REPORT INFORMATION
  Report Type: Report from Study
  Country: CA (occurrence: CA)
  Receive Date: 20130602
  Receipt Date: 20130605
  Transmission Date: 20140414
  Serious: Yes (Life-Threatening, Hospitalization)
  Sender: FDA-Public Use
  Company Number: CA-ROCHE-1230665

PATIENT
  Age: 72 Year
  Sex: Male
  Weight: 75.7 kg

DRUGS (7)
  1. XELODA [Suspect]
     Indication: RECTAL ADENOCARCINOMA
     Route: 048
     Dates: start: 201207, end: 20120728
  2. XELODA [Suspect]
     Route: 048
     Dates: start: 20130526
  3. ASPIRIN [Concomitant]
     Route: 065
  4. APO-METOPROLOL [Concomitant]
     Route: 065
  5. PANTOPRAZOLE [Concomitant]
     Route: 065
  6. COVERSYL [Concomitant]
     Route: 065
  7. ATORVASTATIN [Concomitant]
     Route: 065

REACTIONS (2)
  - Myocardial infarction [Unknown]
  - Metastases to liver [Not Recovered/Not Resolved]
